FAERS Safety Report 25413709 (Version 4)
Quarter: 2025Q3

REPORT INFORMATION
  Report Type: Spontaneous
  Country: US (occurrence: US)
  Receive Date: 20250609
  Receipt Date: 20250810
  Transmission Date: 20251021
  Serious: No
  Sender: ALEXION PHARMACEUTICALS
  Company Number: US-AstraZeneca-CH-00885384AP

PATIENT
  Sex: Female

DRUGS (1)
  1. BEVESPI AEROSPHERE [Suspect]
     Active Substance: FORMOTEROL FUMARATE\GLYCOPYRROLATE
     Indication: Dyspnoea
     Dosage: 9 MICROGRAM, BID
     Route: 065

REACTIONS (9)
  - Dyspnoea [Unknown]
  - Hiatus hernia [Unknown]
  - Body height decreased [Unknown]
  - Asthenia [Unknown]
  - Incorrect dose administered by device [Unknown]
  - Device defective [Unknown]
  - Mobility decreased [Unknown]
  - Wrong technique in product usage process [Unknown]
  - Weight increased [Unknown]
